FAERS Safety Report 7689161-9 (Version None)
Quarter: 2011Q3

REPORT INFORMATION
  Report Type: 
  Country: None (occurrence: None)
  Receive Date: 20110817
  Receipt Date: 20110811
  Transmission Date: 20111222
  Serious: Yes (Other)
  Sender: FDA-Public Use
  Company Number: CH-PFIZER INC-2011184381

PATIENT
  Age: 1 Day
  Sex: Male

DRUGS (3)
  1. LYRICA [Suspect]
     Indication: EPILEPSY
     Dosage: 150 MG, 2X/DAY
     Route: 064
     Dates: start: 20100101
  2. CELESTONE TAB [Concomitant]
     Indication: THERAPEUTIC PROCEDURE
     Dosage: UNK
     Route: 064
     Dates: start: 20101224, end: 20101225
  3. ADALAT [Concomitant]
     Dosage: 30 MG, 2X/DAY
     Route: 064
     Dates: start: 20101224

REACTIONS (3)
  - MATERNAL DRUGS AFFECTING FOETUS [None]
  - MATERNAL EXPOSURE DURING PREGNANCY [None]
  - CLAVICLE FRACTURE [None]
